FAERS Safety Report 4329756-3 (Version None)
Quarter: 2004Q2

REPORT INFORMATION
  Report Type: 
  Country: None (occurrence: None)
  Receive Date: 20040401
  Receipt Date: 20040318
  Transmission Date: 20050107
  Serious: Yes (Other)
  Sender: FDA-Public Use
  Company Number: NL-GLAXOSMITHKLINE-B0327250A

PATIENT

DRUGS (1)
  1. ALBUTEROL SULFATE [Suspect]
     Route: 055

REACTIONS (1)
  - ANAPHYLACTIC SHOCK [None]
